FAERS Safety Report 6986556-3 (Version None)
Quarter: 2010Q3

REPORT INFORMATION
  Report Type: 
  Country: None (occurrence: None)
  Receive Date: 20100915
  Receipt Date: 20090706
  Transmission Date: 20110219
  Serious: No
  Sender: FDA-Public Use
  Company Number: US-WYE-H10054809

PATIENT
  Sex: Female

DRUGS (5)
  1. PRISTIQ [Suspect]
     Indication: PANIC ATTACK
     Route: 048
     Dates: start: 20090626
  2. PRISTIQ [Suspect]
     Indication: DEPRESSION
  3. NEXIUM [Concomitant]
  4. NASACORT [Concomitant]
  5. XANAX [Concomitant]

REACTIONS (7)
  - ANXIETY [None]
  - BALANCE DISORDER [None]
  - CONDITION AGGRAVATED [None]
  - DIZZINESS [None]
  - DRUG INEFFECTIVE [None]
  - HEADACHE [None]
  - NAUSEA [None]
